FAERS Safety Report 19120249 (Version 1)
Quarter: 2021Q2

REPORT INFORMATION
  Report Type: Spontaneous
  Country: PT (occurrence: PT)
  Receive Date: 20210412
  Receipt Date: 20210412
  Transmission Date: 20210717
  Serious: Yes (Other)
  Sender: FDA-Public Use
  Company Number: PT-ORGANON-O2104PRT000470

PATIENT
  Age: 26 Year
  Sex: Female
  Weight: 66 kg

DRUGS (1)
  1. IMPLANON NXT [Suspect]
     Active Substance: ETONOGESTREL
     Indication: CONTRACEPTION
     Dosage: 1 IMPLANT
     Dates: start: 20201015, end: 20210322

REACTIONS (5)
  - Oedema peripheral [Unknown]
  - Vaginal haemorrhage [Unknown]
  - Menstruation irregular [Unknown]
  - Weight increased [Unknown]
  - Irritability [Unknown]

NARRATIVE: CASE EVENT DATE: 20201015
